FAERS Safety Report 4449595-2 (Version None)
Quarter: 2004Q3

REPORT INFORMATION
  Report Type: 
  Country: None (occurrence: None)
  Receive Date: 20040913
  Receipt Date: 20040824
  Transmission Date: 20050211
  Serious: Yes (Death, Life-Threatening, Hospitalization)
  Sender: FDA-Public Use
  Company Number: F01200401058

PATIENT
  Age: 67 Year
  Sex: Male

DRUGS (5)
  1. (OXALIPLATIN)- SOLUTION 265 MG [Suspect]
     Indication: COLORECTAL CANCER METASTATIC
     Dosage: 265 MG Q3W INTRAVENOUS NOS; 2 HOURS TO ONSET
     Route: 042
     Dates: start: 20040405, end: 20040405
  2. (CAPECITABINE)-TABLET-2000 MG/M2 [Suspect]
     Dosage: 2050 MG TWICE DAILY PER ORAL FROM D1 D15, Q3W ORAL
     Route: 048
  3. WARFARIN SODIUM [Concomitant]
  4. CODEINE PHOSPHATE [Concomitant]
  5. CIPROFLOXACIN [Concomitant]

REACTIONS (5)
  - ANAL DISCOMFORT [None]
  - DIARRHOEA [None]
  - INTERNATIONAL NORMALISED RATIO INCREASED [None]
  - PULMONARY EMBOLISM [None]
  - SUDDEN DEATH [None]
